FAERS Safety Report 9671313 (Version 1)
Quarter: 2013Q4

REPORT INFORMATION
  Report Type: Spontaneous
  Country: GB (occurrence: GB)
  Receive Date: 20131106
  Receipt Date: 20131106
  Transmission Date: 20140711
  Serious: Yes (Other)
  Sender: FDA-Public Use
  Company Number: PHHY2013GB122565

PATIENT
  Age: 78 Year
  Sex: Male

DRUGS (10)
  1. CIPROFLOXACIN [Suspect]
     Indication: WOUND INFECTION PSEUDOMONAS
     Dosage: 500 MG, BID
     Route: 048
  2. FLUOXETINE [Concomitant]
  3. ASPIRIN [Concomitant]
  4. BISOPROLOL [Concomitant]
  5. DIGOXIN [Concomitant]
  6. PREDNISOLONE [Concomitant]
  7. SIMVASTATIN [Concomitant]
  8. CO-AMOXICLAV [Concomitant]
  9. ORAMORPH [Concomitant]
  10. DIAZEPAM [Concomitant]

REACTIONS (4)
  - Dyskinesia [Recovered/Resolved]
  - Aggression [Recovered/Resolved]
  - Delusion [Recovered/Resolved]
  - Abnormal dreams [Recovered/Resolved]
